FAERS Safety Report 4325534-X (Version None)
Quarter: 2004Q1

REPORT INFORMATION
  Report Type: 
  Country: None (occurrence: None)
  Receive Date: 20040324
  Receipt Date: 20040308
  Transmission Date: 20041129
  Serious: Yes (Other)
  Sender: FDA-Public Use
  Company Number: USA040361330

PATIENT
  Age: 68 Year
  Sex: Female

DRUGS (2)
  1. EVISTA [Suspect]
     Indication: OSTEOPOROSIS
  2. FOSAMAX [Concomitant]

REACTIONS (4)
  - DRUG INEFFECTIVE [None]
  - PELVIC FRACTURE [None]
  - SPINAL FRACTURE [None]
  - STERNAL FRACTURE [None]
